FAERS Safety Report 25422818 (Version 1)
Quarter: 2025Q2

REPORT INFORMATION
  Report Type: Spontaneous
  Country: US (occurrence: None)
  Receive Date: 20250610
  Receipt Date: 20250610
  Transmission Date: 20250716
  Serious: Yes (Hospitalization)
  Sender: FDA-CTU
  Company Number: None

PATIENT
  Age: 57 Year
  Sex: Female
  Weight: 40 kg

DRUGS (6)
  1. APIXABAN [Suspect]
     Active Substance: APIXABAN
     Indication: Cerebrovascular accident prophylaxis
     Dosage: FREQUENCY : TWICE A DAY;?
     Route: 048
     Dates: end: 20241221
  2. DIVALPROEX SODIUM [Suspect]
     Active Substance: DIVALPROEX SODIUM
  3. LEVETIRACETAM [Suspect]
     Active Substance: LEVETIRACETAM
  4. CARVEDILOL [Suspect]
     Active Substance: CARVEDILOL
  5. METHADONE [Suspect]
     Active Substance: METHADONE HYDROCHLORIDE
  6. PRAVASTATIN [Suspect]
     Active Substance: PRAVASTATIN

REACTIONS (3)
  - Cerebral haemorrhage [None]
  - Tumour haemorrhage [None]
  - Hypotension [None]

NARRATIVE: CASE EVENT DATE: 20241224
